FAERS Safety Report 18255834 (Version 1)
Quarter: 2020Q3

REPORT INFORMATION
  Report Type: Other
  Country: US (occurrence: US)
  Receive Date: 20200910
  Receipt Date: 20200910
  Transmission Date: 20201103
  Serious: No
  Sender: FDA-Public Use
  Company Number: US-LEADIANT BIOSCIENCES INC-2019STPI000462

PATIENT

DRUGS (11)
  1. MATULANE [Suspect]
     Active Substance: PROCARBAZINE HYDROCHLORIDE
     Indication: CUTANEOUS LYMPHOMA
     Dosage: 50 MILLIGRAM, QD
     Route: 048
     Dates: start: 20190720
  2. LUMIGAN [Concomitant]
     Active Substance: BIMATOPROST
  3. PREDNISONE. [Concomitant]
     Active Substance: PREDNISONE
  4. HUMALOG [Concomitant]
     Active Substance: INSULIN LISPRO
  5. SINEMET [Concomitant]
     Active Substance: CARBIDOPA\LEVODOPA
  6. METOPROLOL TARTRATE. [Concomitant]
     Active Substance: METOPROLOL TARTRATE
  7. CLOBETASOL [Concomitant]
     Active Substance: CLOBETASOL
  8. COLLAGENASE [Concomitant]
     Active Substance: COLLAGENASE CLOSTRIDIUM HISTOLYTICUM
  9. GLIMEPIRIDE. [Concomitant]
     Active Substance: GLIMEPIRIDE
  10. LEVEMIR [Concomitant]
     Active Substance: INSULIN DETEMIR
  11. TAMSULOSIN [Concomitant]
     Active Substance: TAMSULOSIN

REACTIONS (3)
  - Stomatitis [Unknown]
  - Alopecia [Unknown]
  - Fatigue [Unknown]

NARRATIVE: CASE EVENT DATE: 201908
